FAERS Safety Report 5190933-3 (Version None)
Quarter: 2006Q4

REPORT INFORMATION
  Report Type: 
  Country: None (occurrence: None)
  Receive Date: 20061222
  Receipt Date: 20061218
  Transmission Date: 20070319
  Serious: Yes (Death)
  Sender: FDA-Public Use
  Company Number: MW-BOEHRINGER INGELHEIM PHARMACEUTICALS, INC.-2006-DE-06722GD

PATIENT

DRUGS (2)
  1. TRIOMUNE [Suspect]
     Indication: HIV INFECTION
  2. RIFAMPICIN [Suspect]
     Indication: TUBERCULOSIS

REACTIONS (1)
  - DEATH [None]
